FAERS Safety Report 5325062-9 (Version None)
Quarter: 2007Q2

REPORT INFORMATION
  Report Type: 
  Country: None (occurrence: None)
  Receive Date: 20070511
  Receipt Date: 20070511
  Transmission Date: 20071010
  Serious: Yes (Hospitalization)
  Sender: FDA-Public Use
  Company Number: None

PATIENT
  Age: 73 Year
  Sex: Male

DRUGS (11)
  1. FUROSEMIDE [Suspect]
     Dosage: 40MG IV BID
     Route: 042
  2. ALPRAZOLAM [Concomitant]
  3. FOSINOPRIL SODIUM [Concomitant]
  4. GABAPENTIN [Concomitant]
  5. GLYBURIDE [Concomitant]
  6. HYDROCORTISONE CREAM [Concomitant]
  7. KOTOCONAZOLE CRM [Concomitant]
  8. METFORMIN HCL [Concomitant]
  9. POTASSIUM CHLORIDE [Concomitant]
  10. SALSALATE [Concomitant]
  11. SIMVASTATIN [Concomitant]

REACTIONS (7)
  - BLOOD CREATININE INCREASED [None]
  - CARDIAC FAILURE [None]
  - DYSPNOEA [None]
  - DYSURIA [None]
  - PNEUMONIA [None]
  - POLYURIA [None]
  - RENAL FAILURE [None]
